FAERS Safety Report 10032470 (Version 3)
Quarter: 2014Q2

REPORT INFORMATION
  Report Type: Spontaneous
  Country: US (occurrence: US)
  Receive Date: 20140324
  Receipt Date: 20140623
  Transmission Date: 20141212
  Serious: No
  Sender: FDA-Public Use
  Company Number: US-SHIONOGI, INC-2014000070

PATIENT
  Age: 64 Year
  Sex: Female

DRUGS (10)
  1. OSPHENA [Suspect]
     Indication: OFF LABEL USE
     Dosage: 60 MG, QD
     Route: 065
     Dates: start: 201401
  2. OSPHENA [Suspect]
     Indication: ATROPHIC VULVOVAGINITIS
  3. PREMARIN [Concomitant]
     Indication: PRODUCT USED FOR UNKNOWN INDICATION
     Dosage: UNK
     Route: 065
  4. ATIVAN [Concomitant]
     Indication: ANXIETY
     Dosage: 0.5 MG, BID
     Route: 065
  5. PROCARDIA                          /00340701/ [Concomitant]
     Indication: HYPERTENSION
     Dosage: XL
  6. LIBRAX                             /00033301/ [Concomitant]
     Indication: IRRITABLE BOWEL SYNDROME
     Dosage: 5-2.5 MG
     Route: 065
  7. PLAQUENIL                          /00072602/ [Concomitant]
     Indication: RHEUMATOID ARTHRITIS
     Dosage: 200 MG, UNK
     Route: 065
  8. PROTONIX [Concomitant]
     Indication: GASTROOESOPHAGEAL REFLUX DISEASE
     Dosage: 40 MG, QD
     Route: 065
  9. PREDNISONE [Concomitant]
     Indication: PAIN
     Dosage: UNK UNK, PRN
     Route: 065
  10. PERCOCET                           /00446701/ [Concomitant]
     Indication: PAIN
     Dosage: UNK UNK, PRN
     Route: 065

REACTIONS (3)
  - Off label use [Not Recovered/Not Resolved]
  - Anxiety [Unknown]
  - Anger [Unknown]
